FAERS Safety Report 18567035 (Version 1)
Quarter: 2020Q4

REPORT INFORMATION
  Report Type: Report from Study
  Country: CA (occurrence: CA)
  Receive Date: 20201201
  Receipt Date: 20201201
  Transmission Date: 20210114
  Serious: Yes (Other)
  Sender: FDA-Public Use
  Company Number: CA-NALPROPION PHARMACEUTICALS INC.-2020-011331

PATIENT

DRUGS (12)
  1. CONTRAVE [Suspect]
     Active Substance: BUPROPION HYDROCHLORIDE\NALTREXONE HYDROCHLORIDE
     Dosage: 90/8 MG, 1 TABLET IN MORNING
     Route: 048
     Dates: start: 20200908, end: 20200915
  2. PANTOPRAZOLE [Concomitant]
     Active Substance: PANTOPRAZOLE
     Indication: GASTROOESOPHAGEAL REFLUX DISEASE
     Dosage: 40 MG,1 IN 1 D
     Route: 048
  3. CALCIUM [Concomitant]
     Active Substance: CALCIUM
     Indication: SUPPLEMENTATION THERAPY
     Dosage: UNK
  4. CONTRAVE [Suspect]
     Active Substance: BUPROPION HYDROCHLORIDE\NALTREXONE HYDROCHLORIDE
     Indication: WEIGHT CONTROL
     Dosage: FIRST ATTEMPT, 90/8 MG, MANY MONTHS AGO FROM THE DATE OF INITIAL REPORT
     Route: 048
  5. HYDROCHLOROTHIAZIDE. [Concomitant]
     Active Substance: HYDROCHLOROTHIAZIDE
     Indication: HYPERTENSION
     Dosage: 25 MG,1 IN 1 D
     Route: 048
  6. CONTRAVE [Suspect]
     Active Substance: BUPROPION HYDROCHLORIDE\NALTREXONE HYDROCHLORIDE
     Dosage: 1 TABLET IN MORNING AND 1 IN THE EVENING, 90/8 MG
     Route: 048
     Dates: start: 20200916, end: 20200921
  7. CONTRAVE [Suspect]
     Active Substance: BUPROPION HYDROCHLORIDE\NALTREXONE HYDROCHLORIDE
     Dosage: 2 TABLETS IN MORNING, 1 TABLET IN EVENING, 90/8 MG
     Route: 048
     Dates: start: 20200922, end: 20200925
  8. DOMPERIDONE [Concomitant]
     Active Substance: DOMPERIDONE
     Indication: GASTROOESOPHAGEAL REFLUX DISEASE
     Dosage: 1 IN 1 D
     Route: 048
  9. VITAMIN D                          /00107901/ [Concomitant]
     Active Substance: ERGOCALCIFEROL
     Indication: SUPPLEMENTATION THERAPY
     Dosage: UNK
  10. LORAZEPAM. [Concomitant]
     Active Substance: LORAZEPAM
     Indication: INSOMNIA
     Dosage: TAKE AT BEDTIME (0.5 MG, 1 IN 1 D)
     Route: 048
  11. ROSUVASTATIN. [Concomitant]
     Active Substance: ROSUVASTATIN
     Indication: HYPERCHOLESTEROLAEMIA
     Dosage: 20 MG,1 IN 1 D
     Route: 048
  12. CONTRAVE [Suspect]
     Active Substance: BUPROPION HYDROCHLORIDE\NALTREXONE HYDROCHLORIDE
     Dosage: 2 TABLETS IN MORNING, 2 TABLETS IN EVENING, 90/8 MG
     Route: 048
     Dates: start: 20200926

REACTIONS (17)
  - Impatience [Unknown]
  - Influenza [Not Recovered/Not Resolved]
  - Headache [Recovering/Resolving]
  - Back pain [Not Recovered/Not Resolved]
  - Mood altered [Unknown]
  - Pain in extremity [Not Recovered/Not Resolved]
  - Nausea [Unknown]
  - Hormone level abnormal [Unknown]
  - Constipation [Not Recovered/Not Resolved]
  - Fatigue [Not Recovered/Not Resolved]
  - Insomnia [Recovering/Resolving]
  - Dry mouth [Not Recovered/Not Resolved]
  - Therapy cessation [Unknown]
  - Sleep apnoea syndrome [Recovering/Resolving]
  - Hyperhidrosis [Unknown]
  - Therapeutic product effect incomplete [Unknown]
  - Abdominal distension [Unknown]

NARRATIVE: CASE EVENT DATE: 2020
